FAERS Safety Report 5335806-8 (Version None)
Quarter: 2007Q2

REPORT INFORMATION
  Report Type: 
  Country: None (occurrence: None)
  Receive Date: 20070322
  Receipt Date: 20061208
  Transmission Date: 20071010
  Serious: No
  Sender: FDA-Public Use
  Company Number: US-CVT-062430

PATIENT
  Age: 70 Year
  Sex: Female
  Weight: 59 kg

DRUGS (5)
  1. RANEXA [Suspect]
     Indication: ANGINA PECTORIS
     Dosage: 500MG, BID; ORAL
     Route: 048
     Dates: start: 20060530, end: 20061207
  2. VYTORIN (EXETIMIBE, SIMVASTATIN) [Concomitant]
  3. ATACAND [Concomitant]
  4. NEXIUM [Concomitant]
  5. ASPIRIN [Concomitant]

REACTIONS (2)
  - VENTRICULAR EXTRASYSTOLES [None]
  - VENTRICULAR TACHYCARDIA [None]
